FAERS Safety Report 6424932-8 (Version None)
Quarter: 2009Q4

REPORT INFORMATION
  Report Type: 
  Country: None (occurrence: None)
  Receive Date: 20091102
  Receipt Date: 20091102
  Transmission Date: 20100525
  Serious: No
  Sender: FDA-Public Use
  Company Number: None

PATIENT
  Age: 69 Year
  Sex: Male

DRUGS (1)
  1. VANCOMYCIN [Suspect]
     Indication: WOUND ABSCESS
     Dosage: 1.25 GM BID IV
     Route: 042
     Dates: start: 20090717, end: 20090717

REACTIONS (1)
  - ANGIOEDEMA [None]
